FAERS Safety Report 5738518-1 (Version None)
Quarter: 2008Q2

REPORT INFORMATION
  Report Type: 
  Country: None (occurrence: None)
  Receive Date: 20080513
  Receipt Date: 20080428
  Transmission Date: 20081010
  Serious: Yes (Death)
  Sender: FDA-Public Use
  Company Number: 100#08#2008-02505

PATIENT
  Age: 17 Year
  Sex: Male

DRUGS (3)
  1. CARBOPLATIN [Suspect]
     Indication: HEPATOBLASTOMA
     Dosage: (EVERY 3-4 WEEKS), INTRAHEPATIC
     Route: 025
  2. CISPLATIN [Suspect]
     Indication: HEPATOBLASTOMA
     Dosage: EVERY 3-4 WEEKS
  3. PIRARUBICIN (INJECTION) (PIRARUBICIN) [Suspect]
     Indication: HEPATOBLASTOMA
     Dosage: (EVERY 3-4 WEEKS)  INTRAHEPATIC
     Route: 025

REACTIONS (4)
  - ACUTE MYELOMONOCYTIC LEUKAEMIA [None]
  - HAEMOGLOBIN DECREASED [None]
  - PLATELET COUNT DECREASED [None]
  - WHITE BLOOD CELL COUNT INCREASED [None]
